FAERS Safety Report 9644643 (Version 1)
Quarter: 2013Q4

REPORT INFORMATION
  Report Type: Spontaneous
  Country: US (occurrence: US)
  Receive Date: 20131025
  Receipt Date: 20131025
  Transmission Date: 20140711
  Serious: No
  Sender: FDA-Public Use
  Company Number: US-JNJFOC-20131010390

PATIENT
  Age: 30 Year
  Sex: Female

DRUGS (5)
  1. DURAGESIC [Suspect]
     Indication: PRODUCT USED FOR UNKNOWN INDICATION
     Route: 062
     Dates: start: 201310, end: 201310
  2. PRISTIQ [Concomitant]
     Route: 048
  3. TRAZODONE [Concomitant]
     Route: 048
  4. NORCO [Concomitant]
     Indication: BREAKTHROUGH PAIN
     Route: 048
  5. IBUPROFEN [Concomitant]
     Indication: PAIN
     Route: 048

REACTIONS (2)
  - Product quality issue [Recovered/Resolved]
  - Drug dose omission [Not Recovered/Not Resolved]
